FAERS Safety Report 4297232-2 (Version None)
Quarter: 2004Q1

REPORT INFORMATION
  Report Type: 
  Country: None (occurrence: None)
  Receive Date: 20040217
  Receipt Date: 20040205
  Transmission Date: 20041129
  Serious: No
  Sender: FDA-Public Use
  Company Number: 7368

PATIENT
  Age: 66 Year
  Sex: Male

DRUGS (4)
  1. AMIODARONE [Suspect]
     Indication: ATRIAL FLUTTER
     Dosage: 200 MG PO
     Route: 048
     Dates: start: 20031128, end: 20040129
  2. WARFARIN SODIUM [Concomitant]
  3. ATORVASTATIN [Concomitant]
  4. SALBUTAMOL [Concomitant]

REACTIONS (1)
  - DERMATITIS EXFOLIATIVE [None]
